FAERS Safety Report 4485005-7 (Version None)
Quarter: 2004Q3

REPORT INFORMATION
  Report Type: 
  Country: None (occurrence: None)
  Receive Date: 20040921
  Receipt Date: 20030820
  Transmission Date: 20050211
  Serious: Yes (Death, Hospitalization)
  Sender: FDA-Public Use
  Company Number: 163-20785-03080721

PATIENT
  Age: 60 Year
  Sex: Female

DRUGS (2)
  1. THALOMID [Suspect]
     Indication: COLORECTAL CANCER METASTATIC
     Dosage: QD, ORAL
     Route: 048
     Dates: start: 20010723, end: 20010910
  2. IRINOTECAN (IRINOTECAN) [Suspect]
     Indication: COLORECTAL CANCER METASTATIC
     Dates: start: 20010723, end: 20010910

REACTIONS (5)
  - DEATH [None]
  - DISEASE PROGRESSION [None]
  - NAUSEA [None]
  - UNEVALUABLE EVENT [None]
  - VOMITING [None]
